FAERS Safety Report 23969467 (Version 1)
Quarter: 2024Q2

REPORT INFORMATION
  Report Type: Report from Study
  Country: FR (occurrence: FR)
  Receive Date: 20240612
  Receipt Date: 20240612
  Transmission Date: 20240716
  Serious: Yes (Hospitalization, Other)
  Sender: FDA-Public Use
  Company Number: FR-JNJFOC-20240601290

PATIENT
  Age: 45 Year
  Sex: Female

DRUGS (2)
  1. MESALAMINE [Suspect]
     Active Substance: MESALAMINE
     Indication: Colitis ulcerative
     Route: 065
     Dates: start: 20180709
  2. SIMPONI [Suspect]
     Active Substance: GOLIMUMAB
     Indication: Colitis ulcerative
     Route: 058
     Dates: start: 20180403

REACTIONS (6)
  - Panniculitis [Not Recovered/Not Resolved]
  - Pyrexia [Recovered/Resolved]
  - Nodule [Recovering/Resolving]
  - Arthropod bite [Recovered/Resolved]
  - Ear infection [Not Recovered/Not Resolved]
  - Inflammatory pain [Recovering/Resolving]

NARRATIVE: CASE EVENT DATE: 20180501
